FAERS Safety Report 14247459 (Version 1)
Quarter: 2017Q4

REPORT INFORMATION
  Report Type: Spontaneous
  Country: US (occurrence: None)
  Receive Date: 20171201
  Receipt Date: 20171201
  Transmission Date: 20180321
  Serious: Yes (Hospitalization)
  Sender: FDA-Public Use
  Company Number: None

PATIENT
  Age: 60 Year
  Sex: Female

DRUGS (1)
  1. AMPYRA [Suspect]
     Active Substance: DALFAMPRIDINE
     Indication: MULTIPLE SCLEROSIS
     Route: 048
     Dates: start: 2012

REACTIONS (7)
  - Blood albumin decreased [None]
  - Blood calcium decreased [None]
  - Colitis ulcerative [None]
  - Haemoglobin decreased [None]
  - Urinary tract infection [None]
  - Haematocrit decreased [None]
  - Clostridium difficile infection [None]

NARRATIVE: CASE EVENT DATE: 20171103
